FAERS Safety Report 16808862 (Version 1)
Quarter: 2019Q4

REPORT INFORMATION
  Report Type: Spontaneous
  Country: US (occurrence: US)
  Receive Date: 20190913
  Receipt Date: 20190913
  Transmission Date: 20200122
  Serious: Yes (Other)
  Sender: FDA-Public Use
  Company Number: None

PATIENT
  Age: 59 Year
  Sex: Male

DRUGS (8)
  1. CARVEDILOL 25MG [Concomitant]
     Active Substance: CARVEDILOL
  2. OMEPRAZOLE 40MG [Concomitant]
     Active Substance: OMEPRAZOLE
  3. ONDANSETRON 8MG [Concomitant]
     Active Substance: ONDANSETRON
  4. NIFEDIPEINE ER 90MG [Concomitant]
  5. CAPECITABINE. [Suspect]
     Active Substance: CAPECITABINE
     Indication: HEPATIC CANCER
     Dosage: 2000 MG ORAL BID ON DAYS 1-7QOD?
     Route: 048
     Dates: start: 20190727
  6. GABAPENTIN 300MG [Concomitant]
     Active Substance: GABAPENTIN
  7. LISINOPRIL 10MG [Concomitant]
     Active Substance: LISINOPRIL
  8. LANTUS SOLOSTAR [Concomitant]
     Active Substance: INSULIN GLARGINE

REACTIONS (3)
  - Amnesia [None]
  - Fall [None]
  - Decreased appetite [None]

NARRATIVE: CASE EVENT DATE: 20190902
